FAERS Safety Report 15667381 (Version 2)
Quarter: 2019Q1

REPORT INFORMATION
  Report Type: Spontaneous
  Country: US (occurrence: US)
  Receive Date: 20181128
  Receipt Date: 20190103
  Transmission Date: 20190417
  Serious: No
  Sender: FDA-Public Use
  Company Number: US-PFIZER INC-2018478229

PATIENT
  Age: 78 Year
  Sex: Female
  Weight: 83 kg

DRUGS (6)
  1. LYRICA [Suspect]
     Active Substance: PREGABALIN
     Indication: NEUROPATHY PERIPHERAL
     Dosage: UNK
     Route: 048
     Dates: start: 201811
  2. FENTANYL. [Concomitant]
     Active Substance: FENTANYL
     Indication: BACK DISORDER
     Dosage: 50 UG, (50 MCG)
  3. LYRICA [Suspect]
     Active Substance: PREGABALIN
     Indication: PAIN
     Dosage: 75 MG, 2X/DAY (FOR WEEK)
     Route: 048
  4. OXYGEN. [Concomitant]
     Active Substance: OXYGEN
     Indication: IDIOPATHIC PULMONARY FIBROSIS
     Dosage: UNK (3LPM VIA NASAL CANNULA   )
     Route: 045
  5. LYRICA [Suspect]
     Active Substance: PREGABALIN
     Dosage: 225 MG, DAILY (75MG AT LUNCH AND 150MG AT BEDTIME)
     Route: 048
  6. LYRICA [Suspect]
     Active Substance: PREGABALIN
     Dosage: 75 MG, AS NEEDED [ONE CAPSULE BY MOUTH THREE TIMES DAILY, AS NEEDED]
     Route: 048

REACTIONS (3)
  - Product use issue [Unknown]
  - Drug ineffective [Unknown]
  - Back disorder [Unknown]

NARRATIVE: CASE EVENT DATE: 201811
